FAERS Safety Report 5749986-3 (Version None)
Quarter: 2008Q2

REPORT INFORMATION
  Report Type: 
  Country: None (occurrence: None)
  Receive Date: 20080527
  Receipt Date: 20080515
  Transmission Date: 20081010
  Serious: Yes (Hospitalization)
  Sender: FDA-Public Use
  Company Number: JP-ROCHE-483371

PATIENT
  Sex: Male
  Weight: 61.5 kg

DRUGS (8)
  1. PEG-INTERFERON A-2A (RO 25-8310) [Suspect]
     Indication: HEPATITIS C
     Route: 058
     Dates: start: 20070131, end: 20070221
  2. PEG-INTERFERON A-2A (RO 25-8310) [Suspect]
     Route: 058
     Dates: start: 20070228, end: 20080228
  3. PEG-INTERFERON A-2A (RO 25-8310) [Suspect]
     Route: 058
     Dates: start: 20070307, end: 20080102
  4. ALOSENN [Concomitant]
     Dosage: DRUG: ALOSENN(SENNA LEAF_SENNA POD)
     Route: 048
     Dates: start: 20070203
  5. ALOSENN [Concomitant]
     Dosage: DRUG: ALOSENN(SENNA LEAF_SENNA POD)
     Route: 048
     Dates: start: 20070203
  6. ALOSENN [Concomitant]
     Dosage: DRUG: ALOSENN(SENNA LEAF_SENNA POD)
     Route: 048
     Dates: start: 20070203
  7. ALOSENN [Concomitant]
     Dosage: DRUG: ALOSENN(SENNA LEAF_SENNA POD)
     Route: 048
     Dates: start: 20070203
  8. 1 CONCOMITANT DRUG [Concomitant]
     Dosage: DRUG: INFLUENZA HA VACCINE
     Route: 042
     Dates: start: 20071121, end: 20071121

REACTIONS (23)
  - ABDOMINAL PAIN [None]
  - BACK PAIN [None]
  - COUGH [None]
  - DECREASED APPETITE [None]
  - DIARRHOEA [None]
  - DIZZINESS [None]
  - ERYTHEMA [None]
  - HEADACHE [None]
  - HEPATIC STEATOSIS [None]
  - HYPERHIDROSIS [None]
  - INSOMNIA [None]
  - MALAISE [None]
  - MOOD ALTERED [None]
  - MUSCULOSKELETAL PAIN [None]
  - NAUSEA [None]
  - NECK PAIN [None]
  - NEUTROPHIL COUNT DECREASED [None]
  - ORAL DISCOMFORT [None]
  - PRURITUS [None]
  - PYREXIA [None]
  - RHINORRHOEA [None]
  - SENSATION OF PRESSURE [None]
  - STOMACH DISCOMFORT [None]
